FAERS Safety Report 24687501 (Version 1)
Quarter: 2024Q4

REPORT INFORMATION
  Report Type: Spontaneous
  Country: US (occurrence: None)
  Receive Date: 20241202
  Receipt Date: 20241202
  Transmission Date: 20250115
  Serious: Yes (Hospitalization)
  Sender: Public
  Company Number: None

PATIENT
  Age: 66 Year
  Sex: Female
  Weight: 42.3 kg

DRUGS (17)
  1. GAMMAGARD [Suspect]
     Active Substance: HUMAN IMMUNOGLOBULIN G
     Indication: Respiratory disorder
     Dosage: OTHER FREQUENCY : WEEKLY;?
     Route: 058
     Dates: start: 20241124
  2. Albuterol 2.5mg/3mL [Concomitant]
  3. ATORVASTATIN [Concomitant]
     Active Substance: ATORVASTATIN
  4. AZITHROMYCIN ANHYDROUS [Concomitant]
     Active Substance: AZITHROMYCIN ANHYDROUS
  5. BACLOFEN [Concomitant]
     Active Substance: BACLOFEN
  6. BENZONATATE [Concomitant]
     Active Substance: BENZONATATE
  7. FOLIC ACID [Concomitant]
     Active Substance: FOLIC ACID
  8. JANUVIA [Concomitant]
     Active Substance: SITAGLIPTIN PHOSPHATE
  9. LEVOTHYROXINE [Concomitant]
     Active Substance: LEVOTHYROXINE
  10. METFORMIN HYDROCHLORIDE [Concomitant]
     Active Substance: METFORMIN HYDROCHLORIDE
  11. METHYLPREDNISOLONE [Concomitant]
     Active Substance: METHYLPREDNISOLONE
  12. Prednisone  1mg [Concomitant]
  13. Pioglitazone 15mg [Concomitant]
  14. VITAMINS [Concomitant]
     Active Substance: VITAMINS
  15. Vit D3 5000U [Concomitant]
  16. Ocuvite  Eye Health [Concomitant]
  17. Ferrous sulfate 325 mg [Concomitant]

REACTIONS (1)
  - Pulmonary embolism [None]

NARRATIVE: CASE EVENT DATE: 20241126
